FAERS Safety Report 22202105 (Version 1)
Quarter: 2023Q2

REPORT INFORMATION
  Report Type: Spontaneous
  Country: PL (occurrence: PL)
  Receive Date: 20230412
  Receipt Date: 20230412
  Transmission Date: 20230721
  Serious: Yes (Other)
  Sender: FDA-Public Use
  Company Number: PL-AMERICAN REGENT INC-2023000818

PATIENT
  Age: 37 Year
  Sex: Male

DRUGS (14)
  1. FERINJECT [Suspect]
     Active Substance: FERRIC CARBOXYMALTOSE
     Indication: Product used for unknown indication
     Dosage: UNK
     Route: 042
  2. VENOFER [Suspect]
     Active Substance: IRON SUCROSE
     Indication: Product used for unknown indication
     Dosage: UNK
     Route: 042
  3. IRON POLYMALTOSE [Suspect]
     Active Substance: IRON POLYMALTOSE
     Indication: Product used for unknown indication
     Dosage: UNK
     Route: 065
  4. TORSEMIDE [Suspect]
     Active Substance: TORSEMIDE
     Indication: Product used for unknown indication
     Dosage: 5 MILLIGRAM, QD
     Route: 065
     Dates: end: 202111
  5. BISOPROLOL [Suspect]
     Active Substance: BISOPROLOL
     Indication: Product used for unknown indication
     Dosage: 7.5 MILLIGRAM, QD
     Route: 065
  6. BISOPROLOL [Suspect]
     Active Substance: BISOPROLOL
     Dosage: 5 MILLIGRAM
     Route: 065
  7. RAMIPRIL [Suspect]
     Active Substance: RAMIPRIL
     Indication: Product used for unknown indication
     Dosage: 10 MILLIGRAM, QD
     Route: 065
  8. PANTOPRAZOLE SODIUM [Suspect]
     Active Substance: PANTOPRAZOLE SODIUM
     Indication: Product used for unknown indication
     Dosage: UNK
     Route: 065
  9. SACUBITRIL\VALSARTAN [Suspect]
     Active Substance: SACUBITRIL\VALSARTAN
     Indication: Product used for unknown indication
     Dosage: 49/51 IN THE MORNING AND 97/103 IN THE EVENING
     Route: 065
  10. SACUBITRIL\VALSARTAN [Suspect]
     Active Substance: SACUBITRIL\VALSARTAN
     Dosage: 2 DOSAGE FORMS (2X 97/103)
     Route: 065
  11. SACUBITRIL\VALSARTAN [Suspect]
     Active Substance: SACUBITRIL\VALSARTAN
     Dosage: 49/51 UNIT UNKNOWN
     Route: 065
  12. AMIODARONE HYDROCHLORIDE [Concomitant]
     Active Substance: AMIODARONE HYDROCHLORIDE
     Indication: Product used for unknown indication
     Dosage: UNK
     Route: 065
  13. SPIRONOLACTONE;TORASEMIDE [Concomitant]
     Indication: Product used for unknown indication
     Dosage: 20 (UNIT UNKNOWN)
     Route: 065
  14. DABIGATRAN ETEXILATE [Concomitant]
     Active Substance: DABIGATRAN ETEXILATE
     Indication: Product used for unknown indication
     Dosage: 2X150 (UNKNOWN)
     Route: 065

REACTIONS (2)
  - Atrial fibrillation [Unknown]
  - Device malfunction [Unknown]

NARRATIVE: CASE EVENT DATE: 20220401
